FAERS Safety Report 5983608-1 (Version None)
Quarter: 2008Q4

REPORT INFORMATION
  Report Type: 
  Country: None (occurrence: None)
  Receive Date: 20081205
  Receipt Date: 20081205
  Transmission Date: 20090506
  Serious: Yes (Hospitalization, Other)
  Sender: FDA-Public Use
  Company Number: None

PATIENT
  Age: 15 Year
  Sex: Female

DRUGS (2)
  1. DEPAKOTE [Suspect]
     Indication: CONVULSION
     Dosage: 1 TAB P.O. B.I.D.
     Route: 048
     Dates: start: 20081101
  2. DEPAKOTE [Suspect]
     Indication: MICROCEPHALY
     Dosage: 1 TAB P.O. B.I.D.
     Route: 048
     Dates: start: 20081101

REACTIONS (4)
  - CONVULSION [None]
  - FALL [None]
  - INJURY [None]
  - THERAPEUTIC RESPONSE UNEXPECTED WITH DRUG SUBSTITUTION [None]
